FAERS Safety Report 22813379 (Version 2)
Quarter: 2023Q4

REPORT INFORMATION
  Report Type: Spontaneous
  Country: US (occurrence: US)
  Receive Date: 20230811
  Receipt Date: 20231011
  Transmission Date: 20240109
  Serious: Yes (Other)
  Sender: FDA-Public Use
  Company Number: US-SAMSUNG BIOEPIS-SB-2023-21400

PATIENT
  Age: 4 Year
  Sex: Female

DRUGS (18)
  1. INFLIXIMAB [Suspect]
     Active Substance: INFLIXIMAB
     Indication: Chronic recurrent multifocal osteomyelitis
     Dosage: UNKNOWN
     Route: 065
  2. ETANERCEPT [Suspect]
     Active Substance: ETANERCEPT
     Indication: Chronic recurrent multifocal osteomyelitis
     Dosage: UNKNOWN
     Route: 065
  3. ETANERCEPT [Suspect]
     Active Substance: ETANERCEPT
     Indication: Psoriasis
  4. ADALIMUMAB [Suspect]
     Active Substance: ADALIMUMAB
     Indication: Chronic recurrent multifocal osteomyelitis
     Dosage: UNKNOWN
     Route: 065
  5. ADALIMUMAB [Suspect]
     Active Substance: ADALIMUMAB
     Indication: Psoriasis
  6. GOLIMUMAB [Suspect]
     Active Substance: GOLIMUMAB
     Indication: Chronic recurrent multifocal osteomyelitis
     Dosage: UNKNOWN
     Route: 065
  7. GOLIMUMAB [Suspect]
     Active Substance: GOLIMUMAB
     Indication: Psoriasis
  8. TOFACITINIB [Suspect]
     Active Substance: TOFACITINIB
     Indication: Chronic recurrent multifocal osteomyelitis
     Dosage: UNKNOWN
     Route: 065
     Dates: start: 202107
  9. TOFACITINIB [Suspect]
     Active Substance: TOFACITINIB
     Indication: Psoriasis
  10. METHOTREXATE SODIUM [Concomitant]
     Active Substance: METHOTREXATE SODIUM
     Indication: Chronic recurrent multifocal osteomyelitis
     Dosage: UNKNOWN
     Route: 065
  11. PAMIDRONATE [Concomitant]
     Active Substance: PAMIDRONATE DISODIUM
     Indication: Chronic recurrent multifocal osteomyelitis
     Dosage: UNKNOWN
     Route: 065
  12. CANAKINUMAB [Concomitant]
     Active Substance: CANAKINUMAB
     Indication: Chronic recurrent multifocal osteomyelitis
     Dosage: UNKNOWN
     Route: 065
  13. CANAKINUMAB [Concomitant]
     Active Substance: CANAKINUMAB
     Indication: Psoriasis
  14. TOCILIZUMAB [Concomitant]
     Active Substance: TOCILIZUMAB
     Indication: Chronic recurrent multifocal osteomyelitis
     Dosage: UNKNOWN
     Route: 065
  15. TOCILIZUMAB [Concomitant]
     Active Substance: TOCILIZUMAB
     Indication: Psoriasis
  16. USTEKINUMAB [Concomitant]
     Active Substance: USTEKINUMAB
     Indication: Chronic recurrent multifocal osteomyelitis
     Dosage: UNKNOWN
     Route: 065
  17. USTEKINUMAB [Concomitant]
     Active Substance: USTEKINUMAB
     Indication: Psoriasis
  18. MELOXICAM [Concomitant]
     Active Substance: MELOXICAM
     Indication: Product used for unknown indication
     Dosage: UNKNOWN
     Route: 065

REACTIONS (3)
  - Psoriasis [Unknown]
  - Chronic recurrent multifocal osteomyelitis [Not Recovered/Not Resolved]
  - Off label use [Unknown]
